FAERS Safety Report 16027448 (Version 1)
Quarter: 2019Q1

REPORT INFORMATION
  Report Type: Report from Study
  Country: None (occurrence: DE)
  Receive Date: 20190304
  Receipt Date: 20190304
  Transmission Date: 20190418
  Serious: Yes (Hospitalization)
  Sender: FDA-Public Use
  Company Number: DE-ABBVIE-19K-062-2684512-00

PATIENT
  Sex: Female

DRUGS (1)
  1. HUMIRA [Suspect]
     Active Substance: ADALIMUMAB
     Indication: PRODUCT USED FOR UNKNOWN INDICATION
     Route: 058
     Dates: start: 201803

REACTIONS (4)
  - Skin wrinkling [Not Recovered/Not Resolved]
  - Blepharitis [Not Recovered/Not Resolved]
  - Infection [Not Recovered/Not Resolved]
  - Fistula [Recovered/Resolved with Sequelae]
